FAERS Safety Report 25115015 (Version 1)
Quarter: 2025Q1

REPORT INFORMATION
  Report Type: Spontaneous
  Country: US (occurrence: US)
  Receive Date: 20250324
  Receipt Date: 20250324
  Transmission Date: 20250409
  Serious: Yes (Other)
  Sender: AMGEN
  Company Number: US-AMGEN-USASP2025055960

PATIENT
  Age: 92 Year
  Sex: Female

DRUGS (5)
  1. RITUXIMAB [Suspect]
     Active Substance: RITUXIMAB
     Indication: Acquired haemophilia
     Route: 065
  2. RITUXIMAB [Suspect]
     Active Substance: RITUXIMAB
     Indication: Pemphigoid
  3. PREDNISONE [Suspect]
     Active Substance: PREDNISONE
     Indication: Acquired haemophilia
     Route: 065
  4. PREDNISONE [Suspect]
     Active Substance: PREDNISONE
     Indication: Pemphigoid
  5. EMICIZUMAB [Concomitant]
     Active Substance: EMICIZUMAB
     Route: 065

REACTIONS (4)
  - Atrial thrombosis [Unknown]
  - Atrial fibrillation [Unknown]
  - Left atrial enlargement [Unknown]
  - Off label use [Unknown]
